FAERS Safety Report 5305636-1 (Version None)
Quarter: 2007Q2

REPORT INFORMATION
  Report Type: 
  Country: None (occurrence: None)
  Receive Date: 20070419
  Receipt Date: 20070419
  Transmission Date: 20071010
  Serious: Yes (Life-Threatening, Hospitalization)
  Sender: FDA-Public Use
  Company Number: None

PATIENT
  Age: 28 Year
  Sex: Female
  Weight: 61.2356 kg

DRUGS (3)
  1. NUVARING [Suspect]
     Indication: CONTRACEPTION
     Dosage: .120 MG/DAY VAG
     Route: 067
     Dates: start: 20060315, end: 20061221
  2. NUVARING [Suspect]
     Indication: DYSMENORRHOEA
     Dosage: .120 MG/DAY VAG
     Route: 067
     Dates: start: 20060315, end: 20061221
  3. VANIQA CREAM [Concomitant]

REACTIONS (3)
  - DEEP VEIN THROMBOSIS [None]
  - PULMONARY EMBOLISM [None]
  - TREATMENT NONCOMPLIANCE [None]
